FAERS Safety Report 23396500 (Version 1)
Quarter: 2024Q1

REPORT INFORMATION
  Report Type: Spontaneous
  Country: US (occurrence: US)
  Receive Date: 20240112
  Receipt Date: 20240112
  Transmission Date: 20240410
  Serious: Yes (Other)
  Sender: FDA-Public Use
  Company Number: US-IGSA-BIG0026935

PATIENT
  Age: 60 Year
  Sex: Male

DRUGS (2)
  1. VISTASEAL [Suspect]
     Active Substance: FIBRINOGEN HUMAN\HUMAN THROMBIN
     Indication: Thyroidectomy
     Dosage: 10 MILLILITER, TOTAL
     Route: 061
     Dates: start: 20231205, end: 20231205
  2. VISTASEAL [Suspect]
     Active Substance: FIBRINOGEN HUMAN\HUMAN THROMBIN
     Indication: Haemostasis

REACTIONS (2)
  - Chest wall haematoma [Recovering/Resolving]
  - Seroma [Recovering/Resolving]

NARRATIVE: CASE EVENT DATE: 20231211
